FAERS Safety Report 10156414 (Version 2)
Quarter: 2014Q2

REPORT INFORMATION
  Report Type: Other
  Country: US (occurrence: US)
  Receive Date: 20140507
  Receipt Date: 20140507
  Transmission Date: 20141212
  Serious: No
  Sender: FDA-Public Use
  Company Number: US-LUPIN PHARMACEUTICALS INC.-E2B_00001588

PATIENT
  Age: 67 Year
  Sex: Female
  Weight: 74.91 kg

DRUGS (2)
  1. IMIPRAMINE HYDROCHLORIDE TABLETS USP 50MG [Suspect]
     Indication: DEPRESSION
     Dates: start: 201304, end: 201304
  2. LEVOTHYROXINE [Concomitant]
     Indication: HYPOTHYROIDISM

REACTIONS (2)
  - Tinnitus [Not Recovered/Not Resolved]
  - Product substitution issue [Not Recovered/Not Resolved]
